FAERS Safety Report 9912284 (Version 5)
Quarter: 2015Q2

REPORT INFORMATION
  Report Type: Report from Study
  Country: US (occurrence: US)
  Receive Date: 20140220
  Receipt Date: 20150410
  Transmission Date: 20150821
  Serious: Yes (Hospitalization)
  Sender: FDA-Public Use
  Company Number: US-BIOGENIDEC-2014BI015578

PATIENT
  Age: 62 Year
  Sex: Female

DRUGS (1)
  1. TYSABRI [Suspect]
     Active Substance: NATALIZUMAB
     Indication: MULTIPLE SCLEROSIS
     Route: 042
     Dates: start: 20120423

REACTIONS (3)
  - Fall [Recovered/Resolved]
  - Intervertebral disc disorder [Not Recovered/Not Resolved]
  - Tibia fracture [Recovered/Resolved]

NARRATIVE: CASE EVENT DATE: 2014
